FAERS Safety Report 11627917 (Version 1)
Quarter: 2015Q4

REPORT INFORMATION
  Report Type: Spontaneous
  Country: DE (occurrence: DE)
  Receive Date: 20151014
  Receipt Date: 20151014
  Transmission Date: 20160304
  Serious: Yes (Death)
  Sender: FDA-Public Use
  Company Number: DE-ROCHE-1639341

PATIENT
  Age: 79 Year
  Sex: Female
  Weight: 95 kg

DRUGS (3)
  1. BISOPROLOL [Concomitant]
     Active Substance: BISOPROLOL
     Indication: HYPERTENSION
     Route: 048
     Dates: start: 20150924
  2. SIMVASTATIN. [Concomitant]
     Active Substance: SIMVASTATIN
     Indication: LIPID METABOLISM DISORDER
     Route: 048
     Dates: start: 20150923
  3. ACTILYSE [Suspect]
     Active Substance: ALTEPLASE
     Indication: PULMONARY EMBOLISM
     Route: 042
     Dates: start: 20150923, end: 20150923

REACTIONS (5)
  - Cerebral haemorrhage [Fatal]
  - Activated partial thromboplastin time prolonged [Unknown]
  - Muscular weakness [Fatal]
  - Speech disorder [Fatal]
  - Coma [Fatal]

NARRATIVE: CASE EVENT DATE: 20150923
